FAERS Safety Report 8608948-9 (Version None)
Quarter: 2012Q3

REPORT INFORMATION
  Report Type: 
  Country: None (occurrence: None)
  Receive Date: 20120821
  Receipt Date: 20101028
  Transmission Date: 20120928
  Serious: Yes (Hospitalization, Other)
  Sender: FDA-Public Use
  Company Number: IE-ROCHE-738245

PATIENT
  Sex: Male
  Weight: 99 kg

DRUGS (9)
  1. NOVOLOG MIX 70/30 [Concomitant]
     Dosage: DOSE: 19,12 , OD
     Route: 058
  2. MIRCERA [Suspect]
     Dosage: DOSE INCREASED
     Route: 058
  3. WARFARIN SODIUM [Concomitant]
     Dosage: OD
     Route: 048
  4. MIRCERA [Suspect]
     Indication: NEPHROGENIC ANAEMIA
     Dosage: FREQUENCY: FORTNIGHTLY
     Route: 058
  5. DOXAZOSIN MESYLATE [Concomitant]
  6. AMLODIPINE [Concomitant]
  7. FENOFIBRATE [Concomitant]
  8. MIRCERA [Suspect]
     Route: 058
  9. MIRCERA [Suspect]
     Dosage: DOSE DECREASED
     Route: 058
     Dates: start: 20100701, end: 20101004

REACTIONS (2)
  - CEREBRAL INFARCTION [None]
  - TRANSIENT ISCHAEMIC ATTACK [None]
